FAERS Safety Report 18294226 (Version 1)
Quarter: 2020Q3

REPORT INFORMATION
  Report Type: Spontaneous
  Country: US (occurrence: US)
  Receive Date: 20200922
  Receipt Date: 20200922
  Transmission Date: 20201103
  Serious: No
  Sender: FDA-Public Use
  Company Number: None

PATIENT
  Age: 30 Year
  Sex: Female
  Weight: 65.77 kg

DRUGS (1)
  1. KYLEENA [Suspect]
     Active Substance: LEVONORGESTREL

REACTIONS (7)
  - Drug ineffective [None]
  - Insomnia [None]
  - Ovarian cyst [None]
  - Pain [None]
  - Pollakiuria [None]
  - Dyspareunia [None]
  - Quality of life decreased [None]

NARRATIVE: CASE EVENT DATE: 20190301
